FAERS Safety Report 14259509 (Version 1)
Quarter: 2017Q4

REPORT INFORMATION
  Report Type: Spontaneous
  Country: IT (occurrence: IT)
  Receive Date: 20171207
  Receipt Date: 20171207
  Transmission Date: 20180321
  Serious: Yes (Hospitalization)
  Sender: FDA-Public Use
  Company Number: IT-ASTRAZENECA-2017SF22359

PATIENT
  Age: 92 Year
  Sex: Male

DRUGS (4)
  1. RIVOTRIL [Concomitant]
     Active Substance: CLONAZEPAM
     Indication: CEREBROVASCULAR DISORDER
     Dosage: 5 GTT
     Route: 048
     Dates: start: 20120305, end: 20161026
  2. QUETIAPINE FUMARATE. [Suspect]
     Active Substance: QUETIAPINE FUMARATE
     Indication: COGNITIVE DISORDER
     Route: 048
     Dates: start: 20161024, end: 20161024
  3. QUETIAPINE FUMARATE. [Suspect]
     Active Substance: QUETIAPINE FUMARATE
     Indication: COGNITIVE DISORDER
     Route: 048
     Dates: start: 20161025, end: 20161026
  4. HALDOL [Concomitant]
     Active Substance: HALOPERIDOL
     Indication: COGNITIVE DISORDER
     Dosage: 7 GTT
     Route: 048
     Dates: start: 20160730, end: 20161023

REACTIONS (6)
  - Asthenia [Recovering/Resolving]
  - Somnolence [Recovering/Resolving]
  - Rabies [Recovering/Resolving]
  - Gait inability [Recovering/Resolving]
  - Agitation [Recovering/Resolving]
  - Speech disorder [Recovering/Resolving]

NARRATIVE: CASE EVENT DATE: 20161025
